FAERS Safety Report 6788964-2 (Version None)
Quarter: 2010Q2

REPORT INFORMATION
  Report Type: 
  Country: None (occurrence: None)
  Receive Date: 20100623
  Receipt Date: 20080623
  Transmission Date: 20101027
  Serious: No
  Sender: FDA-Public Use
  Company Number: US-PFIZER INC-2008052902

PATIENT
  Sex: Male
  Weight: 100 kg

DRUGS (2)
  1. XALATAN [Suspect]
     Indication: INTRAOCULAR PRESSURE TEST
     Route: 047
  2. COSOPT [Concomitant]
     Route: 047

REACTIONS (2)
  - DRUG LABEL CONFUSION [None]
  - VISION BLURRED [None]
